FAERS Safety Report 6901409-4 (Version None)
Quarter: 2010Q3

REPORT INFORMATION
  Report Type: 
  Country: None (occurrence: None)
  Receive Date: 20100803
  Receipt Date: 20080204
  Transmission Date: 20110219
  Serious: No
  Sender: FDA-Public Use
  Company Number: US-PFIZER INC-2008008477

PATIENT
  Sex: Female
  Weight: 73.636 kg

DRUGS (5)
  1. LYRICA [Suspect]
     Indication: PAIN
     Dates: start: 20071211
  2. NEURONTIN [Suspect]
  3. ZOLOFT [Concomitant]
  4. WELLBUTRIN [Concomitant]
  5. VICODIN [Concomitant]

REACTIONS (4)
  - DRUG INEFFECTIVE [None]
  - ENURESIS [None]
  - INSOMNIA [None]
  - MEDICATION ERROR [None]
